FAERS Safety Report 8231185-7 (Version None)
Quarter: 2012Q1

REPORT INFORMATION
  Report Type: 
  Country: None (occurrence: None)
  Receive Date: 20120320
  Receipt Date: 20120307
  Transmission Date: 20120608
  Serious: Yes (Death, Other)
  Sender: FDA-Public Use
  Company Number: 2012SP012858

PATIENT
  Age: 63 Year
  Sex: Male

DRUGS (22)
  1. BETAMETHASONE SODIUM PHOSPHATE [Suspect]
     Indication: IDIOPATHIC PULMONARY FIBROSIS
     Dosage: 8 MG;QD
  2. MIDAZOLAM HCL [Concomitant]
  3. DOPAMINE HYDORCHLORIDE [Concomitant]
  4. THEOLONG [Concomitant]
  5. FENTANYL [Concomitant]
  6. PIRFENIDONE [Suspect]
     Indication: IDIOPATHIC PULMONARY FIBROSIS
     Dosage: 600 MG;QD ; 1200 MG;QD ; 1800 MG;QD ; 600 MG;QD
     Dates: start: 20090624, end: 20090707
  7. PIRFENIDONE [Suspect]
     Indication: IDIOPATHIC PULMONARY FIBROSIS
     Dosage: 600 MG;QD ; 1200 MG;QD ; 1800 MG;QD ; 600 MG;QD
     Dates: start: 20090708, end: 20101230
  8. PIRFENIDONE [Suspect]
     Indication: IDIOPATHIC PULMONARY FIBROSIS
     Dosage: 600 MG;QD ; 1200 MG;QD ; 1800 MG;QD ; 600 MG;QD
     Dates: start: 20090610, end: 20090623
  9. PIRFENIDONE [Suspect]
     Indication: IDIOPATHIC PULMONARY FIBROSIS
     Dosage: 600 MG;QD ; 1200 MG;QD ; 1800 MG;QD ; 600 MG;QD
     Dates: start: 20101231, end: 20110124
  10. NEORAL [Concomitant]
  11. DIOVAN [Concomitant]
  12. ELASPOL [Concomitant]
  13. CYCLOPHOSPHAMIDE [Suspect]
     Indication: IDIOPATHIC PULMONARY FIBROSIS
     Dosage: 890 MG;QD ; 890 MG;QD
  14. SANDIMMUNE [Suspect]
     Indication: IDIOPATHIC PULMONARY FIBROSIS
     Dosage: 200 MG;QD
     Dates: end: 20110125
  15. DAIPHEN [Concomitant]
  16. OMEPRAZOLE [Concomitant]
  17. ALENDRONATE SODIUM [Concomitant]
  18. PREDNISOLONE [Concomitant]
  19. AMLODIPINE BESYLATE [Concomitant]
  20. METHYLPREDNISOLONE SODIUM SUCCINATE [Concomitant]
  21. DIPRIVAN [Concomitant]
  22. NOREPINEPHRINE BITARTRATE [Concomitant]

REACTIONS (5)
  - BLOOD LACTATE DEHYDROGENASE INCREASED [None]
  - GAMMA-GLUTAMYLTRANSFERASE INCREASED [None]
  - BRONCHOPULMONARY ASPERGILLOSIS [None]
  - ATRIAL FLUTTER [None]
  - INSOMNIA [None]
